FAERS Safety Report 7970831-X (Version None)
Quarter: 2011Q4

REPORT INFORMATION
  Report Type: 
  Country: None (occurrence: None)
  Receive Date: 20111212
  Receipt Date: 20111202
  Transmission Date: 20120403
  Serious: Yes (Hospitalization, Disabling)
  Sender: FDA-Public Use
  Company Number: US-GLAXOSMITHKLINE-A0929573A

PATIENT
  Age: 63 Year
  Sex: Male

DRUGS (6)
  1. AVANDIA [Suspect]
     Indication: DIABETES MELLITUS
     Route: 048
     Dates: start: 20050404, end: 20070320
  2. ACCUPRIL [Concomitant]
  3. LIPITOR [Concomitant]
  4. TOPROL-XL [Concomitant]
  5. ZETIA [Concomitant]
  6. METFORMIN HCL [Concomitant]

REACTIONS (3)
  - STENT PLACEMENT [None]
  - MYOCARDIAL INFARCTION [None]
  - CORONARY ARTERY BYPASS [None]
